FAERS Safety Report 8174384-5 (Version None)
Quarter: 2012Q1

REPORT INFORMATION
  Report Type: 
  Country: None (occurrence: None)
  Receive Date: 20120229
  Receipt Date: 20120221
  Transmission Date: 20120608
  Serious: Yes (Death)
  Sender: FDA-Public Use
  Company Number: US-BAYER-2011-093488

PATIENT
  Age: 23 Year
  Sex: Female
  Weight: 86.168 kg

DRUGS (1)
  1. YASMIN [Suspect]

REACTIONS (4)
  - PERIPHERAL EMBOLISM [None]
  - PAIN [None]
  - INJURY [None]
  - PULMONARY EMBOLISM [None]
